FAERS Safety Report 9311769 (Version 1)
Quarter: 2013Q2

REPORT INFORMATION
  Report Type: Spontaneous
  Country: US (occurrence: US)
  Receive Date: 20130524
  Receipt Date: 20130524
  Transmission Date: 20140414
  Serious: Yes (Other)
  Sender: FDA-Public Use
  Company Number: US-RB-054401-13

PATIENT
  Age: 13 Year
  Sex: Female

DRUGS (1)
  1. MUCINEX DM [Suspect]
     Indication: SUICIDE ATTEMPT
     Dosage: PATIENT TOOK 5 TABLETS BY MOUTH, ONE TIME
     Route: 048
     Dates: start: 20130511

REACTIONS (16)
  - Tachycardia [Not Recovered/Not Resolved]
  - Confusional state [Not Recovered/Not Resolved]
  - Tremor [Not Recovered/Not Resolved]
  - Lethargy [Not Recovered/Not Resolved]
  - Asthenia [Not Recovered/Not Resolved]
  - Diplopia [Not Recovered/Not Resolved]
  - Appetite disorder [Not Recovered/Not Resolved]
  - Suicide attempt [Not Recovered/Not Resolved]
  - Intentional overdose [Not Recovered/Not Resolved]
  - Tremor [Not Recovered/Not Resolved]
  - Coordination abnormal [Not Recovered/Not Resolved]
  - Dizziness [Not Recovered/Not Resolved]
  - Somnolence [Not Recovered/Not Resolved]
  - Nausea [Not Recovered/Not Resolved]
  - Vomiting [Not Recovered/Not Resolved]
  - Heart rate increased [Not Recovered/Not Resolved]
